FAERS Safety Report 15565814 (Version 1)
Quarter: 2018Q4

REPORT INFORMATION
  Report Type: Spontaneous
  Country: US (occurrence: US)
  Receive Date: 20181030
  Receipt Date: 20181030
  Transmission Date: 20190205
  Serious: Yes (Death)
  Sender: FDA-Public Use
  Company Number: US-VIIV HEALTHCARE LIMITED-US2018GSK196673

PATIENT
  Age: 33 Year
  Sex: Male

DRUGS (1)
  1. LEXIVA [Suspect]
     Active Substance: FOSAMPRENAVIR CALCIUM
     Indication: HIV INFECTION
     Dosage: UNK
     Dates: start: 2017

REACTIONS (2)
  - Treatment noncompliance [Fatal]
  - Product dose omission [Fatal]

NARRATIVE: CASE EVENT DATE: 20180706
